FAERS Safety Report 11311231 (Version 1)
Quarter: 2015Q3

REPORT INFORMATION
  Report Type: Spontaneous
  Country: BR (occurrence: None)
  Receive Date: 20150723
  Receipt Date: 20150723
  Transmission Date: 20151125
  Serious: Yes (Other)
  Sender: FDA-Public Use
  Company Number: INT_00844_2015

PATIENT
  Age: 58 Year
  Sex: Female

DRUGS (5)
  1. CISPLATIN (CISPLATIN) (HQ SPECIALTY) [Suspect]
     Active Substance: CISPLATIN
     Indication: HEPATIC CANCER
     Dosage: 25 MG/M2, 20 MG IN 40 MIN. ON DAYS 1 AND 8, EVERY 21 DAYS
     Dates: start: 201301
  2. DEXAMETHASONE. [Concomitant]
     Active Substance: DEXAMETHASONE
  3. CARBOPLATIN. [Concomitant]
     Active Substance: CARBOPLATIN
  4. GEMCITABINE [Suspect]
     Active Substance: GEMCITABINE\GEMCITABINE HYDROCHLORIDE
     Indication: HEPATIC CANCER
     Dosage: DF
     Dates: start: 201301
  5. ONDANSETRON [Concomitant]
     Active Substance: ONDANSETRON

REACTIONS (1)
  - Type I hypersensitivity [None]

NARRATIVE: CASE EVENT DATE: 2013
